FAERS Safety Report 11866421 (Version 1)
Quarter: 2015Q4

REPORT INFORMATION
  Report Type: Spontaneous
  Country: US (occurrence: US)
  Receive Date: 20151224
  Receipt Date: 20151224
  Transmission Date: 20160305
  Serious: Yes (Death)
  Sender: FDA-Public Use
  Company Number: US-ORIENT PHARMA CO., LTD.-2015ORT00002

PATIENT
  Age: 43 Year
  Sex: Male

DRUGS (3)
  1. CARISOPRODOL. [Suspect]
     Active Substance: CARISOPRODOL
     Route: 065
  2. ACETAMINOPHEN. [Suspect]
     Active Substance: ACETAMINOPHEN
     Route: 065
  3. HYDROCODONE [Suspect]
     Active Substance: HYDROCODONE
     Route: 065

REACTIONS (6)
  - Hypotension [Fatal]
  - Coagulopathy [Fatal]
  - Depressed level of consciousness [None]
  - Acute kidney injury [Fatal]
  - Coma [Fatal]
  - Hepatotoxicity [Fatal]
